FAERS Safety Report 5551380-5 (Version None)
Quarter: 2007Q4

REPORT INFORMATION
  Report Type: 
  Country: None (occurrence: None)
  Receive Date: 20071128
  Receipt Date: 20070629
  Transmission Date: 20080405
  Serious: Yes (Other)
  Sender: FDA-Public Use
  Company Number: 2007038775

PATIENT
  Age: 56 Year
  Sex: Female
  Weight: 56.2 kg

DRUGS (9)
  1. LIPITOR [Suspect]
     Indication: PROPHYLAXIS
     Dosage: 10 MG (10 MG, 1 IN 1 D), ORAL
     Route: 048
     Dates: start: 20070401, end: 20070509
  2. LISINOPRIL [Concomitant]
  3. PAROXETINE HCL [Concomitant]
  4. LEVOTHYROXINE SODIUM [Concomitant]
  5. INSULIN (INSULIN) [Concomitant]
  6. ACETYLSALICYLIC ACID SRT [Concomitant]
  7. CALCIUM (CALCIUM) [Concomitant]
  8. VITAMIN A (NATURAL) CAP [Concomitant]
  9. MULTIVITAMIN [Concomitant]

REACTIONS (3)
  - AFFECT LABILITY [None]
  - BLOOD GLUCOSE INCREASED [None]
  - DIABETES MELLITUS INADEQUATE CONTROL [None]
